FAERS Safety Report 5261016-9 (Version None)
Quarter: 2007Q1

REPORT INFORMATION
  Report Type: 
  Country: None (occurrence: None)
  Receive Date: 20070309
  Receipt Date: 20070306
  Transmission Date: 20070707
  Serious: Yes (Other)
  Sender: FDA-Public Use
  Company Number: FR-BRISTOL-MYERS SQUIBB COMPANY-13708003

PATIENT
  Age: 35 Year
  Sex: Female

DRUGS (8)
  1. COAPROVEL TABS [Suspect]
     Route: 048
     Dates: end: 20060404
  2. COTAREG [Suspect]
     Dates: end: 20060404
  3. KARDEGIC [Concomitant]
  4. PLAVIX [Concomitant]
  5. ZOCOR [Concomitant]
  6. BUFLOMEDIL [Concomitant]
  7. MEDIATENSYL [Concomitant]
  8. GINKOR FORT [Concomitant]

REACTIONS (3)
  - ABORTION INDUCED [None]
  - DRUG EXPOSURE DURING PREGNANCY [None]
  - PREGNANCY [None]
